FAERS Safety Report 5312361-X (Version None)
Quarter: 2007Q2

REPORT INFORMATION
  Report Type: 
  Country: None (occurrence: None)
  Receive Date: 20070430
  Receipt Date: 20061103
  Transmission Date: 20071010
  Serious: No
  Sender: FDA-Public Use
  Company Number: 2006UW21658

PATIENT
  Age: 77 Year
  Sex: Male
  Weight: 122.5 kg

DRUGS (3)
  1. NEXIUM [Suspect]
     Indication: GASTROOESOPHAGEAL REFLUX DISEASE
     Route: 048
     Dates: start: 20061001
  2. THYROID TAB [Concomitant]
  3. AVODART [Concomitant]

REACTIONS (1)
  - RESPIRATORY DISORDER [None]
